FAERS Safety Report 19251448 (Version 3)
Quarter: 2021Q2

REPORT INFORMATION
  Report Type: Report from Study
  Country: None (occurrence: CO)
  Receive Date: 20210513
  Receipt Date: 20210618
  Transmission Date: 20210717
  Serious: Yes (Other)
  Sender: FDA-Public Use
  Company Number: CO-ABBVIE-21K-036-3900767-00

PATIENT
  Age: 60 Year
  Sex: Female

DRUGS (3)
  1. HUMIRA [Suspect]
     Active Substance: ADALIMUMAB
     Route: 058
     Dates: start: 2021
  2. HUMIRA [Suspect]
     Active Substance: ADALIMUMAB
     Indication: RHEUMATOID ARTHRITIS
     Route: 058
     Dates: start: 20090702
  3. HUMIRA [Suspect]
     Active Substance: ADALIMUMAB
     Indication: RHEUMATOID ARTHRITIS
     Route: 058
     Dates: end: 20210420

REACTIONS (14)
  - Glaucoma [Recovering/Resolving]
  - Decreased appetite [Not Recovered/Not Resolved]
  - COVID-19 [Recovered/Resolved]
  - Oophorectomy [Recovering/Resolving]
  - Drowning [Not Recovered/Not Resolved]
  - Ocular discomfort [Recovering/Resolving]
  - Insomnia [Recovering/Resolving]
  - Pain [Recovered/Resolved]
  - Pain in extremity [Recovering/Resolving]
  - Chest discomfort [Recovered/Resolved]
  - Dry eye [Recovering/Resolving]
  - Hysterectomy [Recovering/Resolving]
  - Weight decreased [Not Recovered/Not Resolved]
  - Asthenia [Recovered/Resolved]

NARRATIVE: CASE EVENT DATE: 2011
